FAERS Safety Report 7483673-9 (Version None)
Quarter: 2011Q2

REPORT INFORMATION
  Report Type: 
  Country: None (occurrence: None)
  Receive Date: 20110509
  Receipt Date: 20110426
  Transmission Date: 20111010
  Serious: Yes (Hospitalization)
  Sender: FDA-Public Use
  Company Number: 1000020649

PATIENT
  Age: 50 Year
  Sex: 0
  Weight: 88 kg

DRUGS (5)
  1. ASS (ACETYLSALICYLIC ACID)(ACETYLSALICYLIC ACID) [Concomitant]
  2. ESCITALOPRAM [Suspect]
     Indication: DEPRESSION
     Dosage: 20 MG (20 MG,  1 IN 1 D), ORAL, 20 MG (10 MQ, 2 IN 1 D),ORAL
     Route: 048
     Dates: start: 20090101
  3. ESCITALOPRAM [Suspect]
     Indication: DEPRESSION
     Dosage: 20 MG (20 MG,  1 IN 1 D), ORAL, 20 MG (10 MQ, 2 IN 1 D),ORAL
     Route: 048
     Dates: start: 20090101
  4. BISOPROLOL FUMARATE [Concomitant]
  5. CODIOVAN (VALSARTAN, HYDROCHLOROTHIAZIDE) (VALSARTAN, HYDROCHLOROTHIAZ [Concomitant]

REACTIONS (4)
  - FEAR [None]
  - PARASOMNIA [None]
  - MENTAL DISORDER [None]
  - SCREAMING [None]
